FAERS Safety Report 24290872 (Version 1)
Quarter: 2024Q3

REPORT INFORMATION
  Report Type: Spontaneous
  Country: BE (occurrence: BE)
  Receive Date: 20240906
  Receipt Date: 20240906
  Transmission Date: 20241017
  Serious: Yes (Hospitalization)
  Sender: PFIZER
  Company Number: BE-ROCHE-2884476

PATIENT
  Age: 55 Year
  Sex: Female
  Weight: 50.1 kg

DRUGS (13)
  1. CARBOPLATIN [Suspect]
     Active Substance: CARBOPLATIN
     Indication: Non-small cell lung cancer metastatic
     Dosage: DATE OF MOST RECENT DOSE (AUC) OF 5 ADMINISTERED OF CARBOPLATIN PRIOR TO SAE ONSET: 13JUL2021
     Route: 042
  2. CISPLATIN [Suspect]
     Active Substance: CISPLATIN
     Indication: Non-small cell lung cancer metastatic
     Dosage: DATE OF MOST RECENT DOSE (111.75 MG) OF CISPLATIN ADMINISTERED PRIOR TO SAE ONSET: 13JUL2021
     Route: 042
     Dates: start: 20210713
  3. PEMETREXED [Suspect]
     Active Substance: PEMETREXED
     Indication: Non-small cell lung cancer metastatic
     Dosage: DATE OF MOST RECENT DOSE (745 MG) OF PEMETREXED ADMINSTERED PRIOR TO SAE ONSET: 13JUL2021
     Route: 042
     Dates: start: 20210713
  4. ATEZOLIZUMAB [Suspect]
     Active Substance: ATEZOLIZUMAB
     Indication: Non-small cell lung cancer metastatic
     Dosage: DATE OF MOST RECENT DOSE ADMINISTERED OF ATEZOLIZUMAB PRIOR TO SAE ONSET: 13JUL2021
     Route: 042
     Dates: start: 20210713
  5. ACETYLCYSTEINE [Concomitant]
     Active Substance: ACETYLCYSTEINE
     Dosage: UNK
     Dates: start: 20210714, end: 20210714
  6. ALIZAPRIDE HYDROCHLORIDE [Concomitant]
     Active Substance: ALIZAPRIDE HYDROCHLORIDE
     Indication: Nausea
     Dosage: UNK
     Dates: start: 20210802
  7. AKYNZEO (NETUPITANT\PALONOSETRON HYDROCHLORIDE) [Concomitant]
     Active Substance: NETUPITANT\PALONOSETRON HYDROCHLORIDE
     Indication: Premedication
     Dosage: UNK
     Dates: start: 20210713
  8. TIRAGOLUMAB [Concomitant]
     Active Substance: TIRAGOLUMAB
     Indication: Non-small cell lung cancer metastatic
     Dosage: DATE OF MOST RECENT DOSE OF BLINDED TIRAGOLUMAB PRIOR TO SAE ONSET: 13JUL2021
     Route: 042
     Dates: start: 20210713
  9. CYANOCOBALAMIN [Concomitant]
     Active Substance: CYANOCOBALAMIN
     Indication: Premedication
     Dosage: UNK
     Dates: start: 20210701
  10. LASIX [Concomitant]
     Active Substance: FUROSEMIDE
     Indication: Dyspnoea
     Dosage: UNK
     Dates: start: 20210714, end: 20210714
  11. BISOPROLOL [Concomitant]
     Active Substance: BISOPROLOL\BISOPROLOL FUMARATE
     Indication: Hypertension
     Dosage: UNK
     Dates: start: 2014
  12. MEDROL [Concomitant]
     Active Substance: METHYLPREDNISOLONE
     Indication: Premedication
     Dosage: 32 MG, 1X/DAY
     Route: 048
     Dates: start: 20210712
  13. FOLIC ACID [Concomitant]
     Active Substance: FOLIC ACID
     Indication: Premedication
     Dosage: UNK
     Dates: start: 20210701

REACTIONS (2)
  - Pneumonia [Recovered/Resolved]
  - Off label use [Unknown]

NARRATIVE: CASE EVENT DATE: 20210802
